FAERS Safety Report 8907431 (Version 1)
Quarter: 2012Q4

REPORT INFORMATION
  Report Type: 
  Country: US (occurrence: US)
  Receive Date: 20121113
  Receipt Date: 20121113
  Transmission Date: 20130627
  Serious: No
  Sender: FDA-Public Use
  Company Number: US-AMGEN-USASP2012010404

PATIENT
  Age: 57 Year
  Sex: Female
  Weight: 97.51 kg

DRUGS (17)
  1. ENBREL [Suspect]
     Indication: PRODUCT USED FOR UNKNOWN INDICATION
     Dosage: 50 mg, qwk
     Route: 058
  2. AMBIEN CR [Concomitant]
     Dosage: 12.5 mg, UNK
  3. CELEBREX [Concomitant]
     Dosage: 200 mg, UNK
  4. SERTRALINE [Concomitant]
     Dosage: 25 mg, UNK
  5. METHOTREXATE [Concomitant]
     Dosage: 2.5 mg, UNK
  6. ENALAPRIL [Concomitant]
     Dosage: 10 mg, UNK
  7. LORAZEPAM [Concomitant]
     Dosage: 2 mg, UNK
  8. SIMVASTATIN [Concomitant]
     Dosage: 20 mg, UNK
  9. ASPIRIN [Concomitant]
     Dosage: 81 mg, UNK
  10. PRILOSEC                           /00661203/ [Concomitant]
     Dosage: 40 mg, UNK
  11. MULTIVITAMIN                       /00097801/ [Concomitant]
     Dosage: UNK
  12. ZANAFLEX [Concomitant]
     Dosage: 2 mg, UNK
  13. CALCIUM [Concomitant]
     Dosage: UNK
  14. LORTAB                             /00607101/ [Concomitant]
     Dosage: UNK
  15. FOLIC ACID [Concomitant]
     Dosage: 5 mg, UNK
  16. D3 [Concomitant]
     Dosage: 1000 IU, UNK
  17. HYDROCHLOROTHIAZIDE W/TRIAMTERENE [Concomitant]
     Dosage: UNK

REACTIONS (1)
  - Injection site urticaria [Recovering/Resolving]
